FAERS Safety Report 6979800-X (Version None)
Quarter: 2010Q3

REPORT INFORMATION
  Report Type: 
  Country: None (occurrence: None)
  Receive Date: 20100914
  Receipt Date: 20100907
  Transmission Date: 20110219
  Serious: Yes (Hospitalization)
  Sender: FDA-Public Use
  Company Number: US-BIOGENIDEC-2010BI031349

PATIENT
  Age: 61 Year
  Sex: Female

DRUGS (2)
  1. AVONEX [Suspect]
     Indication: MULTIPLE SCLEROSIS
     Route: 030
     Dates: start: 19991201
  2. AVONEX [Suspect]
     Route: 030

REACTIONS (1)
  - CELLULITIS [None]
